FAERS Safety Report 8181510-0 (Version None)
Quarter: 2012Q1

REPORT INFORMATION
  Report Type: 
  Country: None (occurrence: None)
  Receive Date: 20120302
  Receipt Date: 20120227
  Transmission Date: 20120608
  Serious: Yes (Hospitalization, Other)
  Sender: FDA-Public Use
  Company Number: US-PFIZER INC-2012051539

PATIENT
  Sex: Male
  Weight: 90.703 kg

DRUGS (5)
  1. NEURONTIN [Suspect]
     Indication: NEURALGIA
     Dosage: 300 MG, 2X/DAY
     Dates: start: 20111101
  2. NORCO [Concomitant]
     Indication: BACK DISORDER
     Dosage: UNK
  3. NEURONTIN [Suspect]
     Indication: BACK PAIN
  4. VIAGRA [Suspect]
     Indication: ERECTILE DYSFUNCTION
     Dosage: 100 MG, AS NEEDED
     Dates: start: 19930101
  5. GLUCOTROL [Suspect]
     Indication: DIABETES MELLITUS
     Dosage: DAILY

REACTIONS (10)
  - WHITE BLOOD CELL COUNT ABNORMAL [None]
  - CARDIAC DISORDER [None]
  - MOOD SWINGS [None]
  - SEPSIS [None]
  - BACK PAIN [None]
  - PROSTATIC SPECIFIC ANTIGEN INCREASED [None]
  - STAPHYLOCOCCAL INFECTION [None]
  - NEURALGIA [None]
  - DEPRESSION [None]
  - HYPERTENSION [None]
